FAERS Safety Report 19495557 (Version 1)
Quarter: 2021Q3

REPORT INFORMATION
  Report Type: Spontaneous
  Country: GB (occurrence: GB)
  Receive Date: 20210706
  Receipt Date: 20210706
  Transmission Date: 20211014
  Serious: Yes (Other)
  Sender: FDA-Public Use
  Company Number: GB-ACCORD-230699

PATIENT
  Age: 58 Year
  Sex: Male

DRUGS (1)
  1. SERTRALINE [Suspect]
     Active Substance: SERTRALINE HYDROCHLORIDE
     Indication: PRODUCT USED FOR UNKNOWN INDICATION
     Dosage: 200 MG, DAILY
     Dates: start: 2014, end: 2015

REACTIONS (5)
  - Condition aggravated [Unknown]
  - Autism spectrum disorder [Unknown]
  - Peripheral swelling [Unknown]
  - Pruritus [Unknown]
  - Inflammation [Unknown]
